FAERS Safety Report 4618855-4 (Version None)
Quarter: 2005Q1

REPORT INFORMATION
  Report Type: 
  Country: None (occurrence: None)
  Receive Date: 20050323
  Receipt Date: 20050310
  Transmission Date: 20050727
  Serious: Yes (Death, Hospitalization, Other)
  Sender: FDA-Public Use
  Company Number: 2005021534

PATIENT
  Age: 82 Year
  Sex: Female
  Weight: 54.4316 kg

DRUGS (1)
  1. BEXTRA [Suspect]
     Indication: MYALGIA
     Dosage: ORAL
     Route: 048
     Dates: start: 20031201

REACTIONS (11)
  - BLISTER [None]
  - HYPERSENSITIVITY [None]
  - IMPAIRED HEALING [None]
  - INCISION SITE COMPLICATION [None]
  - INCISIONAL DRAINAGE [None]
  - IODINE ALLERGY [None]
  - PAIN [None]
  - RENAL FAILURE [None]
  - SKIN DISORDER [None]
  - STEVENS-JOHNSON SYNDROME [None]
  - WOUND [None]
